FAERS Safety Report 6133583-4 (Version None)
Quarter: 2009Q1

REPORT INFORMATION
  Report Type: 
  Country: None (occurrence: None)
  Receive Date: 20090324
  Receipt Date: 20090316
  Transmission Date: 20090719
  Serious: Yes (Death)
  Sender: FDA-Public Use
  Company Number: 2009AL001539

PATIENT
  Age: 56 Year
  Sex: Male

DRUGS (5)
  1. CITALOPRAM HYDROBROMIDE [Suspect]
     Indication: DEPRESSION
     Dosage: 40 MG; PO
     Route: 048
     Dates: start: 20090102
  2. PERINDOPRIL ERBUMINE [Concomitant]
  3. WARFARIN SODIUM [Concomitant]
  4. ATENOLOL [Concomitant]
  5. DIGOXIN [Concomitant]

REACTIONS (1)
  - COMPLETED SUICIDE [None]
